FAERS Safety Report 4744504-0 (Version None)
Quarter: 2005Q3

REPORT INFORMATION
  Report Type: 
  Country: None (occurrence: None)
  Receive Date: 20050809
  Receipt Date: 20050726
  Transmission Date: 20060218
  Serious: Yes (Life-Threatening, Hospitalization)
  Sender: FDA-Public Use
  Company Number: THYM-10595

PATIENT
  Age: 45 Year
  Sex: Female
  Weight: 88.8 kg

DRUGS (5)
  1. THYMOGLOBULIN [Suspect]
     Indication: RENAL TRANSPLANT
     Dosage: 100 MG QD IV
     Route: 042
     Dates: start: 20050121, end: 20050125
  2. PROGRAF [Concomitant]
  3. MYCOPHENOLATE MOFETIL [Concomitant]
  4. PREDNISONE [Concomitant]
  5. RAPAMUNE [Concomitant]

REACTIONS (12)
  - ANAEMIA [None]
  - ANASTOMOTIC LEAK [None]
  - ANGIOPATHY [None]
  - CULTURE POSITIVE [None]
  - DIABETES MELLITUS [None]
  - FAT NECROSIS [None]
  - INFECTION [None]
  - PANCREAS TRANSPLANT [None]
  - PANCREATITIS ACUTE [None]
  - SMALL INTESTINAL OBSTRUCTION [None]
  - THROMBOSIS [None]
  - TRANSPLANT FAILURE [None]
